FAERS Safety Report 25194922 (Version 1)
Quarter: 2025Q2

REPORT INFORMATION
  Report Type: Spontaneous
  Country: IT (occurrence: IT)
  Receive Date: 20250415
  Receipt Date: 20250415
  Transmission Date: 20250717
  Serious: Yes (Other)
  Sender: AMGEN
  Company Number: IT-AMGEN-ITASP2025070652

PATIENT

DRUGS (1)
  1. ADALIMUMAB [Suspect]
     Active Substance: ADALIMUMAB
     Indication: Uveitis
     Dosage: UNK UNK, Q2WK, (20 MG/40 MG)
     Route: 065

REACTIONS (3)
  - Omphalitis [Unknown]
  - Injection site pain [Unknown]
  - Rash [Unknown]
